FAERS Safety Report 14304852 (Version 1)
Quarter: 2017Q4

REPORT INFORMATION
  Report Type: Spontaneous
  Country: JP (occurrence: JP)
  Receive Date: 20171219
  Receipt Date: 20171219
  Transmission Date: 20180321
  Serious: Yes (Other)
  Sender: FDA-Public Use
  Company Number: JP-OTSUKA-011694

PATIENT
  Sex: Male

DRUGS (12)
  1. ABILIFY [Suspect]
     Active Substance: ARIPIPRAZOLE
     Dosage: 3 MG, QD
     Route: 048
     Dates: start: 20100722, end: 20100730
  2. REBAMIPIDE [Concomitant]
     Active Substance: REBAMIPIDE
     Route: 048
  3. RIVOTRIL [Concomitant]
     Active Substance: CLONAZEPAM
     Indication: ANXIETY
     Dosage: 0.5 MG, PRN
     Route: 048
  4. CLONAZEPAM. [Concomitant]
     Active Substance: CLONAZEPAM
     Dosage: TABLET
  5. TOPINA [Concomitant]
     Active Substance: TOPIRAMATE
     Dosage: 100 MG, QD
     Route: 048
  6. ZITHTORMIN [Concomitant]
     Dosage: 1 DF, DAILY DOSE
     Route: 048
  7. DALMATE [Concomitant]
     Active Substance: FLURAZEPAM HYDROCHLORIDE
     Indication: INSOMNIA
     Dosage: 1 DF, PRN
     Route: 048
  8. MUCOSTA TABLETS 100MG [Concomitant]
     Active Substance: REBAMIPIDE
  9. FLURAZEPAM HCL [Concomitant]
     Active Substance: FLURAZEPAM HYDROCHLORIDE
     Dosage: DALMATE(FLURAZEPAM HCL), CAPSULE
  10. URSO [Concomitant]
     Active Substance: URSODIOL
     Route: 048
  11. ABILIFY [Suspect]
     Active Substance: ARIPIPRAZOLE
     Dosage: 6 MG, QD
     Route: 048
     Dates: start: 20100731, end: 20101030
  12. MEILAX [Concomitant]
     Active Substance: ETHYL LOFLAZEPATE
     Dosage: 4 MG, QD
     Route: 048

REACTIONS (2)
  - Parkinsonism [Unknown]
  - Gait inability [Unknown]
